FAERS Safety Report 5772811-1 (Version None)
Quarter: 2008Q2

REPORT INFORMATION
  Report Type: 
  Country: None (occurrence: None)
  Receive Date: 20080613
  Receipt Date: 20080606
  Transmission Date: 20081010
  Serious: Yes (Other)
  Sender: FDA-Public Use
  Company Number: US-PFIZER INC-2008017010

PATIENT
  Sex: Male
  Weight: 103.4 kg

DRUGS (5)
  1. LIPITOR [Suspect]
     Indication: HYPERCHOLESTEROLAEMIA
     Route: 048
  2. LIPITOR [Suspect]
     Indication: HIGH DENSITY LIPOPROTEIN DECREASED
  3. NEXIUM [Suspect]
     Indication: GASTROOESOPHAGEAL REFLUX DISEASE
     Dates: start: 20070101, end: 20071101
  4. AGGRENOX [Concomitant]
  5. ASPIRIN [Concomitant]

REACTIONS (15)
  - ACHLORHYDRIA [None]
  - ANAEMIA [None]
  - ARTERIAL OCCLUSIVE DISEASE [None]
  - BIOPSY BONE MARROW [None]
  - BLOOD CHOLESTEROL ABNORMAL [None]
  - CEREBROVASCULAR ACCIDENT [None]
  - COLONOSCOPY [None]
  - ENDOSCOPY UPPER GASTROINTESTINAL TRACT [None]
  - GASTROINTESTINAL DISORDER [None]
  - HAEMOGLOBIN DECREASED [None]
  - IRON METABOLISM DISORDER [None]
  - MYALGIA [None]
  - OCCULT BLOOD POSITIVE [None]
  - POLYP [None]
  - TRANSIENT ISCHAEMIC ATTACK [None]
